FAERS Safety Report 18625265 (Version 4)
Quarter: 2022Q4

REPORT INFORMATION
  Report Type: Report from Study
  Country: AR (occurrence: AR)
  Receive Date: 20201216
  Receipt Date: 20221010
  Transmission Date: 20230113
  Serious: Yes (Death, Hospitalization, Other)
  Sender: FDA-Public Use
  Company Number: AR-TAKEDA-AR201911703

PATIENT
  Age: 16 Year
  Sex: Male

DRUGS (1)
  1. IDURSULFASE [Suspect]
     Active Substance: IDURSULFASE
     Indication: Mucopolysaccharidosis II
     Dosage: 0.31 MILLIGRAM/KILOGRAM, Q2WEEKS
     Route: 042
     Dates: start: 20111207

REACTIONS (2)
  - Aspiration [Fatal]
  - Pneumonia aspiration [Recovered/Resolved]

NARRATIVE: CASE EVENT DATE: 20171006
